FAERS Safety Report 6072345-3 (Version None)
Quarter: 2009Q1

REPORT INFORMATION
  Report Type: 
  Country: None (occurrence: None)
  Receive Date: 20090210
  Receipt Date: 20090130
  Transmission Date: 20090719
  Serious: Yes (Other)
  Sender: FDA-Public Use
  Company Number: PHHY2009IE02163

PATIENT
  Sex: Male

DRUGS (5)
  1. CLOZARIL [Suspect]
     Indication: SCHIZOPHRENIA
     Dosage: 550 MG DAILY
     Dates: start: 19931013
  2. AMISULPRIDE [Concomitant]
     Dosage: 100 MG DAILY
     Route: 048
     Dates: start: 20081125
  3. CLONAZEPAM [Concomitant]
     Indication: ANXIETY
     Dosage: 1 MG DAILY
     Route: 048
     Dates: start: 20081125
  4. CLONAZEPAM [Concomitant]
     Indication: AGITATION
  5. VALPROATE SODIUM [Concomitant]
     Indication: CONVULSION
     Dosage: 200 MG DAILY
     Route: 048
     Dates: start: 20090102

REACTIONS (3)
  - ANTIPSYCHOTIC DRUG LEVEL INCREASED [None]
  - GENERAL PHYSICAL HEALTH DETERIORATION [None]
  - OBSESSIVE-COMPULSIVE DISORDER [None]
